FAERS Safety Report 6143451-X (Version None)
Quarter: 2009Q2

REPORT INFORMATION
  Report Type: 
  Country: None (occurrence: None)
  Receive Date: 20090403
  Receipt Date: 20090326
  Transmission Date: 20091009
  Serious: Yes (Other)
  Sender: FDA-Public Use
  Company Number: PHHY2009CA11547

PATIENT
  Sex: Female

DRUGS (3)
  1. FEMARA [Suspect]
     Dosage: 2.5 MG, QD
     Dates: start: 20040515
  2. SYNTHROID [Concomitant]
     Dosage: 50 UG DAILY
  3. LOSEC                                   /CAN/ [Concomitant]
     Dosage: 20 MG DAILY

REACTIONS (5)
  - CATARACT [None]
  - CHEST DISCOMFORT [None]
  - DIZZINESS [None]
  - GLAUCOMA [None]
  - VISUAL IMPAIRMENT [None]
